FAERS Safety Report 6493545-4 (Version None)
Quarter: 2009Q4

REPORT INFORMATION
  Report Type: 
  Country: None (occurrence: None)
  Receive Date: 20091214
  Receipt Date: 20091202
  Transmission Date: 20100525
  Serious: Yes (Hospitalization)
  Sender: FDA-Public Use
  Company Number: CA-PFIZER INC-2008056223

PATIENT
  Age: 64 Year
  Sex: Male
  Weight: 118 kg

DRUGS (12)
  1. SUTENT [Suspect]
     Indication: METASTATIC RENAL CELL CARCINOMA
     Dosage: 50 MG, 1X/DAY, FOR 4 WEEKS
     Route: 048
     Dates: start: 20080602
  2. PLAVIX [Concomitant]
     Route: 048
     Dates: start: 20070601
  3. LIPITOR [Concomitant]
     Route: 048
     Dates: start: 20070601
  4. ASPIRIN [Concomitant]
     Route: 048
     Dates: start: 20070601
  5. SYMBICORT [Concomitant]
     Route: 055
     Dates: start: 20080530
  6. VENTOLIN [Concomitant]
     Route: 055
     Dates: start: 19970601
  7. VALSARTAN [Concomitant]
     Route: 048
  8. ALPHAGAN [Concomitant]
     Route: 047
     Dates: start: 20050601
  9. TRAVATAN [Concomitant]
     Route: 047
     Dates: start: 20050601
  10. MORPHINE [Concomitant]
     Route: 048
     Dates: start: 20080605
  11. NITROGLYCERIN [Concomitant]
     Route: 055
     Dates: start: 20070601
  12. RAMIPRIL [Concomitant]
     Route: 048
     Dates: start: 20070601

REACTIONS (1)
  - PULMONARY EMBOLISM [None]
